FAERS Safety Report 5725405-8 (Version None)
Quarter: 2008Q2

REPORT INFORMATION
  Report Type: 
  Country: None (occurrence: None)
  Receive Date: 20080501
  Receipt Date: 20080423
  Transmission Date: 20081010
  Serious: Yes (Hospitalization, Other)
  Sender: FDA-Public Use
  Company Number: DK-PFIZER INC-2008018871

PATIENT
  Sex: Female
  Weight: 70 kg

DRUGS (7)
  1. CHAMPIX [Suspect]
     Indication: SMOKING CESSATION THERAPY
     Route: 048
     Dates: start: 20071008, end: 20071117
  2. LITHIUM CARBONATE [Interacting]
     Indication: DEPRESSION
     Dosage: DAILY DOSE:600MG
     Route: 048
  3. METOPROLOL TARTRATE [Concomitant]
     Indication: HYPERTENSION
     Dosage: DAILY DOSE:100MG
     Route: 048
  4. IMOZOP [Concomitant]
     Indication: INSOMNIA
     Dosage: DAILY DOSE:7.5MG
     Route: 048
  5. AFEKSIN [Concomitant]
     Route: 048
  6. DOLOL [Concomitant]
     Indication: BACK PAIN
     Dosage: DAILY DOSE:150MG
     Route: 048
  7. FLUOXETINE [Concomitant]
     Indication: DEPRESSION
     Route: 048

REACTIONS (10)
  - BLOOD PRESSURE INCREASED [None]
  - CONFUSIONAL STATE [None]
  - DISTURBANCE IN ATTENTION [None]
  - DIZZINESS [None]
  - DRUG INTERACTION [None]
  - FATIGUE [None]
  - HEADACHE [None]
  - MALAISE [None]
  - NAUSEA [None]
  - SOMNOLENCE [None]
